FAERS Safety Report 8015408-5 (Version None)
Quarter: 2011Q4

REPORT INFORMATION
  Report Type: 
  Country: None (occurrence: None)
  Receive Date: 20111230
  Receipt Date: 20111222
  Transmission Date: 20120403
  Serious: Yes (Other)
  Sender: FDA-Public Use
  Company Number: US-BRISTOL-MYERS SQUIBB COMPANY-15859762

PATIENT
  Age: 21 Year
  Sex: Female
  Weight: 73 kg

DRUGS (13)
  1. MYAMBUTOL [Concomitant]
     Dosage: 1DF:200 UNITS NOS
  2. FLOXIN [Concomitant]
  3. ZIAGEN [Concomitant]
     Dosage: TAB
     Route: 048
  4. ABACAVIR [Concomitant]
     Dosage: 1DF:3.5CC
  5. ZYRTEC [Concomitant]
  6. VIRAMUNE [Concomitant]
     Dosage: TAB
  7. VIDEX [Concomitant]
     Dosage: 1DF:50 UNITS NOS
  8. ZERIT [Suspect]
     Indication: HIV INFECTION
     Dosage: 1DF:1 CAPSULE ALSO 20MG BID
  9. VIRACEPT [Concomitant]
     Dosage: 1DF:6 PILLS,1500 UNITS NOS STRENGTH:350MG 1250 BID
  10. CLARITIN [Concomitant]
  11. EPIVIR [Concomitant]
     Dosage: 1DF:3/4 TAB 150 UNITS NOS
  12. BIAXIN [Concomitant]
     Dosage: ALSO 250 UNITS NOS
     Route: 048
  13. BACTRIM [Concomitant]
     Dosage: 1DF:80 NOS

REACTIONS (8)
  - SINUSITIS [None]
  - DEPRESSION [None]
  - LIPOHYPERTROPHY [None]
  - SUICIDE ATTEMPT [None]
  - HIDRADENITIS [None]
  - PHARYNGOTONSILLITIS [None]
  - LIPODYSTROPHY ACQUIRED [None]
  - ECZEMA [None]
